FAERS Safety Report 14495388 (Version 1)
Quarter: 2018Q1

REPORT INFORMATION
  Report Type: Spontaneous
  Country: US (occurrence: US)
  Receive Date: 20180206
  Receipt Date: 20180206
  Transmission Date: 20180509
  Serious: No
  Sender: FDA-Public Use
  Company Number: US-SMITH AND NEPHEW, INC-2017SMT00327

PATIENT
  Sex: Female
  Weight: 91.61 kg

DRUGS (15)
  1. BABY ASPIRIN [Concomitant]
     Active Substance: ASPIRIN
     Dosage: 81 MG, 1X/DAY
  2. LISINOPRIL. [Concomitant]
     Active Substance: LISINOPRIL
     Dosage: UNK MG, UNK
  3. HYDROCHLOROTHIAZIDE. [Concomitant]
     Active Substance: HYDROCHLOROTHIAZIDE
  4. METFORMIN [Concomitant]
     Active Substance: METFORMIN HYDROCHLORIDE
     Dosage: 1000 MG, 2X/DAY
  5. GLIMEPIRIDE. [Concomitant]
     Active Substance: GLIMEPIRIDE
     Dosage: UNK, 2X/DAY
  6. POTASSIUM CITRATE ER [Concomitant]
     Dosage: 10 MEQ, 2X/DAY
  7. CALCIUM WITH VITAMIN D3 [Concomitant]
     Active Substance: CALCIUM CARBONATE\CHOLECALCIFEROL
     Dosage: 600 MG, 1X/DAY IN THE MORNING
  8. VITAMIN D3 [Concomitant]
     Active Substance: CHOLECALCIFEROL
     Dosage: UNK, 2X/DAY
  9. NOVOLOG [Concomitant]
     Active Substance: INSULIN ASPART
     Dosage: SLIDING SCALE WITH EVERY MEAL
  10. PRAVASTATIN. [Concomitant]
     Active Substance: PRAVASTATIN
     Dosage: 30 MG, 1X/DAY
  11. CILOSTAZOL. [Concomitant]
     Active Substance: CILOSTAZOL
     Dosage: 100 MG, 2X/DAY (EVERY 12 HOURS)
  12. VITAMIN B12 [Concomitant]
     Active Substance: CYANOCOBALAMIN
     Dosage: 0.1 ML, 1X/MONTH
  13. BASAGLAR [Concomitant]
     Active Substance: INSULIN GLARGINE
     Dosage: 56 U, 1X/DAY AT NIGHT
  14. LEVOTHYROXINE. [Concomitant]
     Active Substance: LEVOTHYROXINE
     Dosage: 50 ?G, 1X/DAY
  15. REGRANEX [Suspect]
     Active Substance: BECAPLERMIN
     Indication: WOUND
     Dosage: UNK, 1X/DAY FOR 12 HOURS ON AND 12 HOURS OFF
     Route: 061
     Dates: start: 201704

REACTIONS (13)
  - Wound necrosis [Recovering/Resolving]
  - Wound complication [Recovering/Resolving]
  - Wound haemorrhage [Recovering/Resolving]
  - Application site discolouration [Recovering/Resolving]
  - Excessive granulation tissue [Recovering/Resolving]
  - Burning sensation [Recovering/Resolving]
  - Peripheral vascular disorder [Recovering/Resolving]
  - Application site pain [Recovering/Resolving]
  - Heart rate increased [Recovering/Resolving]
  - Arthralgia [Recovering/Resolving]
  - Wound decomposition [Recovering/Resolving]
  - Hyperkeratosis [Recovering/Resolving]
  - Skin discolouration [Not Recovered/Not Resolved]

NARRATIVE: CASE EVENT DATE: 2017
